FAERS Safety Report 9602085 (Version 1)
Quarter: 2013Q4

REPORT INFORMATION
  Report Type: Spontaneous
  Country: US (occurrence: US)
  Receive Date: 20131007
  Receipt Date: 20131007
  Transmission Date: 20140711
  Serious: Yes (Death, Other)
  Sender: FDA-Public Use
  Company Number: US-BRISTOL-MYERS SQUIBB COMPANY-18858142

PATIENT
  Age: 69 Year
  Sex: Male
  Weight: 79.8 kg

DRUGS (2)
  1. BELATACEPT [Suspect]
     Indication: RENAL TRANSPLANT
     Dosage: LAST DOSE 14-JAN-2013
     Route: 042
     Dates: start: 20120316
  2. MYCOPHENOLATE MOFETIL [Concomitant]
     Dosage: START DOSE 2000 MG
     Dates: start: 20120929, end: 20121109

REACTIONS (2)
  - Pneumocystis jirovecii pneumonia [Fatal]
  - Renal transplant failure [Unknown]
